FAERS Safety Report 19588261 (Version 1)
Quarter: 2021Q3

REPORT INFORMATION
  Report Type: Spontaneous
  Country: US (occurrence: US)
  Receive Date: 20210720
  Receipt Date: 20210720
  Transmission Date: 20211014
  Serious: Yes (Life-Threatening)
  Sender: FDA-Public Use
  Company Number: None

PATIENT
  Age: 68 Year
  Sex: Male

DRUGS (2)
  1. ACTIVASE [Suspect]
     Active Substance: ALTEPLASE
     Indication: CEREBROVASCULAR ACCIDENT
     Route: 042
     Dates: start: 20210719, end: 20210719
  2. IOHEXOL [Concomitant]
     Active Substance: IOHEXOL
     Dates: start: 20210719

REACTIONS (4)
  - Angioedema [None]
  - Swollen tongue [None]
  - Cerebrovascular accident [None]
  - Bradycardia [None]

NARRATIVE: CASE EVENT DATE: 20210719
